FAERS Safety Report 8618918-2 (Version None)
Quarter: 2012Q3

REPORT INFORMATION
  Report Type: 
  Country: None (occurrence: None)
  Receive Date: 20120824
  Receipt Date: 20120816
  Transmission Date: 20120928
  Serious: Yes (Hospitalization)
  Sender: FDA-Public Use
  Company Number: FR-PFIZER INC-2012206081

PATIENT
  Age: 91 Year
  Sex: Female

DRUGS (6)
  1. ZOLOFT [Concomitant]
     Dosage: UNK
  2. PREVISCAN [Concomitant]
     Dosage: UNK
  3. NITROGLYCERIN [Concomitant]
     Dosage: UNK
     Dates: end: 20120712
  4. CORDARONE [Suspect]
     Indication: ATRIAL FIBRILLATION
     Dosage: UNK
     Route: 048
     Dates: start: 20120101, end: 20120524
  5. EXELON [Interacting]
     Indication: COGNITIVE DISORDER
     Dosage: 4.5 MG, 2X/DAY
     Route: 048
     Dates: end: 20120602
  6. ATACAND [Concomitant]
     Dosage: UNK
     Dates: end: 20120712

REACTIONS (4)
  - ATRIOVENTRICULAR BLOCK [None]
  - BRADYCARDIA [None]
  - DRUG INTERACTION [None]
  - BLOOD POTASSIUM INCREASED [None]
